FAERS Safety Report 14882786 (Version 1)
Quarter: 2018Q2

REPORT INFORMATION
  Report Type: Spontaneous
  Country: US (occurrence: US)
  Receive Date: 20180511
  Receipt Date: 20180511
  Transmission Date: 20180711
  Serious: No
  Sender: FDA-Public Use
  Company Number: US-ALLERGAN-1805802US

PATIENT
  Age: 82 Year
  Sex: Female

DRUGS (1)
  1. RHOFADE [Suspect]
     Active Substance: OXYMETAZOLINE HYDROCHLORIDE
     Indication: ROSACEA
     Dosage: UNK, QHS
     Route: 061
     Dates: start: 201801, end: 201802

REACTIONS (6)
  - Drug ineffective [Unknown]
  - Application site inflammation [Recovered/Resolved]
  - Application site pain [Unknown]
  - Application site exfoliation [Recovered/Resolved]
  - Application site erythema [Unknown]
  - Application site pruritus [Recovered/Resolved]

NARRATIVE: CASE EVENT DATE: 201801
